FAERS Safety Report 14424125 (Version 2)
Quarter: 2018Q1

REPORT INFORMATION
  Report Type: Report from Study
  Country: BR (occurrence: BR)
  Receive Date: 20180123
  Receipt Date: 20180206
  Transmission Date: 20180509
  Serious: Yes (Hospitalization, Other)
  Sender: FDA-Public Use
  Company Number: PHHY2018BR008554

PATIENT
  Age: 88 Year
  Sex: Female
  Weight: 59 kg

DRUGS (12)
  1. ACLASTA [Suspect]
     Active Substance: ZOLEDRONIC ACID
     Dosage: 1 DF (5MG/100ML), Q12MO
     Route: 042
     Dates: start: 2017, end: 2017
  2. ATENOLOL. [Concomitant]
     Active Substance: ATENOLOL
     Indication: HYPERTENSION
  3. CITALOPRAM [Concomitant]
     Active Substance: CITALOPRAM HYDROBROMIDE
     Indication: CEREBROVASCULAR ACCIDENT
     Dosage: 0.5 DF, QD (FOR 2 AND HALF YEARS AGO)
     Route: 048
  4. ASA [Interacting]
     Active Substance: ASPIRIN
     Indication: CEREBROVASCULAR ACCIDENT
     Route: 048
  5. ATENOLOL. [Concomitant]
     Active Substance: ATENOLOL
     Indication: ARRHYTHMIA
     Dosage: 1 DF, QD (FOR LONG TIME)
     Route: 048
  6. ESOPRAZOLE [Concomitant]
     Indication: GASTRITIS
     Dosage: 1 DF, QD (FOR 6 MONTH)
     Route: 048
  7. VITAMIN D [Concomitant]
     Active Substance: CHOLECALCIFEROL
     Indication: OSTEOPOROSIS
     Dosage: 1 DF, QD (FOR LONG TIME)
     Route: 048
  8. ACLASTA [Suspect]
     Active Substance: ZOLEDRONIC ACID
     Dosage: 1 DF (5MG/100ML), Q12MO
     Route: 042
     Dates: end: 2018
  9. ATORVASTATIN [Concomitant]
     Active Substance: ATORVASTATIN
     Indication: CEREBROVASCULAR ACCIDENT PROPHYLAXIS
     Dosage: 1 DF, QD (TWO AND HALF YEARS)
     Route: 048
  10. ACLASTA [Suspect]
     Active Substance: ZOLEDRONIC ACID
     Indication: OSTEOPOROSIS
     Dosage: 1 DF (5MG/100ML), Q12MO
     Route: 042
     Dates: start: 20160824, end: 20160824
  11. XARELTO [Interacting]
     Active Substance: RIVAROXABAN
     Indication: CEREBROVASCULAR ACCIDENT
     Dosage: 1 DF, QD (FROM 2 AND A HALF YEARS)
     Route: 048
  12. LOSARTAN. [Concomitant]
     Active Substance: LOSARTAN
     Indication: HYPERTENSION
     Dosage: 1 DF, QD (FOR LONG TIME)
     Route: 048

REACTIONS (6)
  - Intestinal ulcer [Recovered/Resolved]
  - Gait disturbance [Unknown]
  - Abdominal pain upper [Recovered/Resolved]
  - Arthralgia [Unknown]
  - Drug interaction [Recovered/Resolved]
  - Ulcer haemorrhage [Recovered/Resolved]

NARRATIVE: CASE EVENT DATE: 201707
